FAERS Safety Report 9475610 (Version 1)
Quarter: 2013Q3

REPORT INFORMATION
  Report Type: Report from Study
  Country: AU (occurrence: AU)
  Receive Date: 20130826
  Receipt Date: 20130826
  Transmission Date: 20140515
  Serious: Yes (Other)
  Sender: FDA-Public Use
  Company Number: PHHY2013AU090641

PATIENT
  Sex: Male

DRUGS (6)
  1. CLOZARIL [Suspect]
     Dosage: UNK
  2. ATENOLOL [Suspect]
     Dosage: UNK
  3. DOCUSATE SODIUM [Concomitant]
     Dosage: UNK
  4. FLUOXETINE [Concomitant]
     Dosage: UNK
  5. SENNA [Concomitant]
     Dosage: UNK
  6. SIMVASTATIN [Concomitant]
     Dosage: UNK

REACTIONS (6)
  - Mental disorder [Unknown]
  - Weight decreased [Unknown]
  - Hyperhidrosis [Unknown]
  - Neutropenia [Unknown]
  - Tachycardia [Unknown]
  - Leukopenia [Unknown]
